FAERS Safety Report 17458411 (Version 1)
Quarter: 2020Q1

REPORT INFORMATION
  Report Type: Spontaneous
  Country: DK (occurrence: DK)
  Receive Date: 20200225
  Receipt Date: 20200225
  Transmission Date: 20200409
  Serious: Yes (Death)
  Sender: FDA-Public Use
  Company Number: NVSC2020DK050997

PATIENT
  Age: 16 Day
  Sex: Male

DRUGS (7)
  1. SOLVISAT [Suspect]
     Active Substance: HYDROCORTISONE SODIUM SUCCINATE
     Indication: PSORIASIS
     Dosage: UNK, (210-280 MG)
     Route: 065
     Dates: start: 1968
  2. TRIAMCINOLONE [Suspect]
     Active Substance: TRIAMCINOLONE
     Indication: PRODUCT USED FOR UNKNOWN INDICATION
     Dosage: 56 MG, DAILY
     Route: 065
     Dates: start: 1968
  3. METHOTREXATE SODIUM. [Suspect]
     Active Substance: METHOTREXATE SODIUM
     Dosage: 100 MG
     Route: 042
     Dates: start: 1968
  4. TRIAMCINOLONE [Suspect]
     Active Substance: TRIAMCINOLONE
     Dosage: 4 MG, DAILY
     Route: 065
     Dates: start: 196803
  5. METHOTREXATE SODIUM. [Suspect]
     Active Substance: METHOTREXATE SODIUM
     Indication: PSORIASIS
     Dosage: UNK (DOSES UP TO 50 MG)
     Route: 042
     Dates: start: 1968
  6. METHOTREXATE. [Suspect]
     Active Substance: METHOTREXATE
     Indication: PSORIASIS
     Dosage: 25 MG, WEEKLY
     Route: 048
     Dates: start: 19680401
  7. METHOTREXATE SODIUM. [Suspect]
     Active Substance: METHOTREXATE SODIUM
     Dosage: 250 MG, QW
     Route: 030
     Dates: start: 1968

REACTIONS (8)
  - Pneumonia [Fatal]
  - Off label use [Fatal]
  - Cardiac failure congestive [Fatal]
  - Nausea [Fatal]
  - Mouth ulceration [Fatal]
  - Leukopenia [Fatal]
  - Drug ineffective for unapproved indication [Fatal]
  - Product use in unapproved indication [Fatal]

NARRATIVE: CASE EVENT DATE: 1968
